FAERS Safety Report 7655712-3 (Version None)
Quarter: 2011Q3

REPORT INFORMATION
  Report Type: 
  Country: None (occurrence: None)
  Receive Date: 20110804
  Receipt Date: 20110722
  Transmission Date: 20111222
  Serious: Yes (Other)
  Sender: FDA-Public Use
  Company Number: US-BAYER-201040937NA

PATIENT
  Age: 23 Year
  Sex: Female
  Weight: 56.689 kg

DRUGS (8)
  1. IBUPROFEN [Concomitant]
  2. YASMIN [Suspect]
     Indication: PREMENSTRUAL SYNDROME
     Dosage: UNK
     Route: 048
     Dates: start: 20040101, end: 20060701
  3. NAPROXEN (ALEVE) [Concomitant]
  4. GLUCOSAMINE [Concomitant]
  5. TYLENOL-500 [Concomitant]
     Indication: PAIN
  6. YAZ [Suspect]
     Indication: PREMENSTRUAL SYNDROME
     Dosage: UNK
     Route: 048
     Dates: start: 20040101, end: 20060701
  7. LYBREL [Concomitant]
     Indication: ENDOMETRIOSIS
     Dosage: UNK
  8. ADVIL LIQUI-GELS [Concomitant]

REACTIONS (5)
  - MENTAL DISORDER [None]
  - ABDOMINAL PAIN UPPER [None]
  - CHOLECYSTITIS CHRONIC [None]
  - GALLBLADDER DISORDER [None]
  - MALAISE [None]
